FAERS Safety Report 12438587 (Version 3)
Quarter: 2016Q3

REPORT INFORMATION
  Report Type: Spontaneous
  Country: FI (occurrence: FI)
  Receive Date: 20160606
  Receipt Date: 20160718
  Transmission Date: 20161109
  Serious: Yes (Hospitalization)
  Sender: FDA-Public Use
  Company Number: FI-PFIZER INC-2016241116

PATIENT
  Age: 34 Year
  Sex: Female
  Weight: 56 kg

DRUGS (5)
  1. CYTOTEC [Suspect]
     Active Substance: MISOPROSTOL
     Indication: INDUCED LABOUR
     Dosage: 50 UG, 2X/DAY
     Route: 048
     Dates: start: 20160227, end: 20160227
  2. CYTOTEC [Suspect]
     Active Substance: MISOPROSTOL
     Dosage: 50 UG, 2X/DAY
     Route: 067
     Dates: start: 20160229, end: 20160229
  3. OXANEST [Concomitant]
     Active Substance: OXYCODONE HYDROCHLORIDE
     Indication: LABOUR PAIN
     Dosage: 10 MG, 2X/DAY
     Route: 030
     Dates: start: 20160229, end: 20160229
  4. CYTOTEC [Suspect]
     Active Substance: MISOPROSTOL
     Dosage: 100 UG, 2X/DAY
     Route: 048
     Dates: start: 20160228, end: 20160228
  5. SYNTOCINON ORIFARM [Concomitant]
     Indication: INDUCED LABOUR
     Dosage: 12-60 ML/H
     Route: 042
     Dates: start: 20160226, end: 20160226

REACTIONS (8)
  - Face oedema [Recovered/Resolved]
  - Laryngeal oedema [Recovered/Resolved]
  - Hot flush [Recovered/Resolved]
  - Blood pressure decreased [Recovered/Resolved]
  - Angioedema [Recovered/Resolved]
  - Blood lactic acid increased [Recovered/Resolved]
  - Product use issue [Recovered/Resolved]
  - Foetal-maternal haemorrhage [Recovered/Resolved]

NARRATIVE: CASE EVENT DATE: 20160227
